FAERS Safety Report 8126583-6 (Version None)
Quarter: 2012Q1

REPORT INFORMATION
  Report Type: 
  Country: None (occurrence: None)
  Receive Date: 20120210
  Receipt Date: 20120131
  Transmission Date: 20120608
  Serious: Yes (Other)
  Sender: FDA-Public Use
  Company Number: CH-BIOGENIDEC-2011BI048312

PATIENT
  Age: 32 Year
  Sex: Female

DRUGS (11)
  1. FRAGMIN [Concomitant]
     Dates: start: 20111110, end: 20111118
  2. CHORIOMON [Concomitant]
     Dates: start: 20111112, end: 20111117
  3. DOXYCLIN [Concomitant]
     Dates: start: 20111108, end: 20111118
  4. MERIONAL [Concomitant]
     Dates: start: 20111027, end: 20111106
  5. PROGYNOVA [Concomitant]
     Dates: start: 20111108, end: 20111118
  6. TYSABRI [Suspect]
     Indication: MULTIPLE SCLEROSIS
     Route: 042
     Dates: start: 20110826, end: 20111021
  7. TYSABRI [Suspect]
     Route: 042
     Dates: start: 20120102
  8. DECAPEPTYL [Concomitant]
     Dates: start: 20111009, end: 20111119
  9. CHORIOMON [Concomitant]
     Dates: start: 20111107
  10. FOLSAN [Concomitant]
     Dates: start: 20111009
  11. PRONTOGEST [Concomitant]
     Dates: start: 20111109, end: 20111118

REACTIONS (1)
  - ABORTION SPONTANEOUS [None]
